FAERS Safety Report 10148787 (Version 1)
Quarter: 2014Q2

REPORT INFORMATION
  Report Type: Spontaneous
  Country: US (occurrence: US)
  Receive Date: 20140502
  Receipt Date: 20140502
  Transmission Date: 20141212
  Serious: Yes (Other)
  Sender: FDA-Public Use
  Company Number: US-AMGEN INC.-USASP2014031131

PATIENT
  Age: 59 Year
  Sex: Female

DRUGS (1)
  1. ENBREL [Suspect]
     Indication: PRODUCT USED FOR UNKNOWN INDICATION
     Dosage: UNK
     Route: 065
     Dates: start: 201309, end: 20140301

REACTIONS (5)
  - Nasal septum deviation [Unknown]
  - Arthralgia [Unknown]
  - Arthritis [Unknown]
  - Sinusitis [Unknown]
  - Drug ineffective [Unknown]
